FAERS Safety Report 13163469 (Version 1)
Quarter: 2017Q1

REPORT INFORMATION
  Report Type: Spontaneous
  Country: IE (occurrence: IE)
  Receive Date: 20170130
  Receipt Date: 20170130
  Transmission Date: 20170428
  Serious: Yes (Hospitalization)
  Sender: FDA-Public Use
  Company Number: IE-JNJFOC-20170123935

PATIENT
  Age: 68 Year
  Sex: Female

DRUGS (11)
  1. STELARA [Suspect]
     Active Substance: USTEKINUMAB
     Indication: PSORIASIS
     Route: 058
     Dates: start: 20160711
  2. PANTOPRAZOLE [Concomitant]
     Active Substance: PANTOPRAZOLE SODIUM
     Route: 065
  3. BRILIQUE [Concomitant]
     Active Substance: TICAGRELOR
     Route: 065
  4. NSA [Concomitant]
     Active Substance: UNSPECIFIED INGREDIENT
     Route: 065
  5. FRUSEMIDE [Concomitant]
     Active Substance: FUROSEMIDE
     Route: 065
  6. INEGY [Concomitant]
     Active Substance: EZETIMIBE\SIMVASTATIN
     Route: 065
  7. GALFER [Concomitant]
     Active Substance: IRON
     Route: 065
  8. LANTUS [Concomitant]
     Active Substance: INSULIN GLARGINE
     Route: 065
  9. BISOP [Concomitant]
     Route: 065
  10. METFORMIN [Concomitant]
     Active Substance: METFORMIN HYDROCHLORIDE
     Route: 065
  11. FORXIGA [Concomitant]
     Active Substance: DAPAGLIFLOZIN
     Route: 065

REACTIONS (2)
  - Influenza [Unknown]
  - Tachycardia [Unknown]

NARRATIVE: CASE EVENT DATE: 20170123
